FAERS Safety Report 8188684-6 (Version None)
Quarter: 2012Q1

REPORT INFORMATION
  Report Type: 
  Country: None (occurrence: None)
  Receive Date: 20120306
  Receipt Date: 20120224
  Transmission Date: 20120608
  Serious: Yes (Hospitalization, Other)
  Sender: FDA-Public Use
  Company Number: US-ELI_LILLY_AND_COMPANY-US201111000550

PATIENT
  Sex: Female

DRUGS (10)
  1. VITAMIN D [Concomitant]
     Dosage: 2000 U, QD
  2. SYNTHROID [Concomitant]
     Dosage: 0.1 MG, QD
  3. ASPIRIN [Concomitant]
     Dosage: 81 MG, QD
  4. VITAMIN B6 [Concomitant]
     Dosage: 50 MG, PRN
  5. DILANTIN [Concomitant]
     Indication: CONVULSION
     Dosage: 200 MG, BID
  6. FORTEO [Suspect]
     Dosage: 20 UG, QD
     Route: 065
     Dates: end: 20120129
  7. CALCIUM [Concomitant]
     Dosage: 1200 MG, QD
  8. MYSOLINE [Concomitant]
     Dosage: 250 MG, BID
  9. ASCORBIC ACID [Concomitant]
     Dosage: 500 MG, QD
  10. FORTEO [Suspect]
     Indication: OSTEOPOROSIS
     Dosage: 20 UG, QD
     Route: 065
     Dates: start: 20111017

REACTIONS (21)
  - ANEURYSM [None]
  - DIZZINESS [None]
  - PAIN IN EXTREMITY [None]
  - ADVERSE DRUG REACTION [None]
  - SWELLING FACE [None]
  - HEADACHE [None]
  - INJECTION SITE PAIN [None]
  - EYE PAIN [None]
  - CONSTIPATION [None]
  - OCULAR HYPERAEMIA [None]
  - THYROID NEOPLASM [None]
  - FAECAL INCONTINENCE [None]
  - CONFUSIONAL STATE [None]
  - FACIAL PAIN [None]
  - ERYTHEMA [None]
  - HOT FLUSH [None]
  - DYSPHONIA [None]
  - HEARING IMPAIRED [None]
  - WRONG TECHNIQUE IN DRUG USAGE PROCESS [None]
  - GENERAL PHYSICAL CONDITION ABNORMAL [None]
  - ADVERSE EVENT [None]
